FAERS Safety Report 8442985-2 (Version None)
Quarter: 2012Q2

REPORT INFORMATION
  Report Type: 
  Country: None (occurrence: None)
  Receive Date: 20120615
  Receipt Date: 20120608
  Transmission Date: 20120825
  Serious: Yes (Death)
  Sender: FDA-Public Use
  Company Number: DE-ELI_LILLY_AND_COMPANY-DE201205007391

PATIENT
  Age: 81 Year
  Sex: Female

DRUGS (2)
  1. MORPHINE [Concomitant]
  2. FORTEO [Suspect]
     Indication: OSTEOPOROSIS
     Dosage: UNK, QD
     Route: 058
     Dates: start: 20120424

REACTIONS (2)
  - CEREBRAL HAEMORRHAGE [None]
  - DYSPNOEA [None]
